FAERS Safety Report 6198889-1 (Version None)
Quarter: 2009Q2

REPORT INFORMATION
  Report Type: 
  Country: None (occurrence: None)
  Receive Date: 20090519
  Receipt Date: 20090519
  Transmission Date: 20091009
  Serious: Yes (Life-Threatening)
  Sender: FDA-Public Use
  Company Number: None

PATIENT
  Age: 54 Year
  Sex: Female
  Weight: 54.4316 kg

DRUGS (2)
  1. PORCINE THYROID 130MG NUTRI-MEDS [Suspect]
     Indication: SELF-MEDICATION
     Dosage: NO GREATER THAN 5 PILLS PER DA DAILY PO
     Route: 048
     Dates: start: 20090403, end: 20090514
  2. SYNTHROID [Concomitant]

REACTIONS (8)
  - AGITATION [None]
  - APNOEA [None]
  - BLOOD PRESSURE DIASTOLIC DECREASED [None]
  - BODY TEMPERATURE INCREASED [None]
  - COMA [None]
  - HEART RATE INCREASED [None]
  - SELF-MEDICATION [None]
  - UNRESPONSIVE TO STIMULI [None]
